FAERS Safety Report 16050167 (Version 1)
Quarter: 2019Q1

REPORT INFORMATION
  Report Type: Spontaneous
  Country: CZ (occurrence: CZ)
  Receive Date: 20190308
  Receipt Date: 20190308
  Transmission Date: 20190418
  Serious: Yes (Other)
  Sender: FDA-Public Use
  Company Number: CZ-SA-2019SA059950

PATIENT
  Sex: Male

DRUGS (4)
  1. DOCETAXEL. [Suspect]
     Active Substance: DOCETAXEL
     Indication: PROSTATE CANCER METASTATIC
     Dosage: 75 MG/M2, QIW TOTALLY, 10 CYCLES
     Dates: start: 201607, end: 201612
  2. ENZALUTAMIDE [Suspect]
     Active Substance: ENZALUTAMIDE
     Indication: PROSTATE CANCER METASTATIC
     Dosage: 160 MG, QD
     Dates: start: 201708
  3. XOFIGO [Suspect]
     Active Substance: RADIUM RA-223 DICHLORIDE
     Dosage: TOTALLY, 6 DOSES WITH 4 WEEKS INTERVAL (TILL NOV-2018 00:00)
  4. PREDNISONE. [Suspect]
     Active Substance: PREDNISONE
     Indication: PROSTATE CANCER METASTATIC
     Dosage: 2X 5MG DAILY, TOTALLY, 10 CYCLES WERE ADMINISTERED
     Dates: start: 201607, end: 201612

REACTIONS (5)
  - Diarrhoea [Recovering/Resolving]
  - Disease progression [Recovering/Resolving]
  - Prostate cancer metastatic [Recovering/Resolving]
  - Neuropathy peripheral [Recovering/Resolving]
  - Spinal pain [Recovering/Resolving]

NARRATIVE: CASE EVENT DATE: 201708
